FAERS Safety Report 12114895 (Version 2)
Quarter: 2016Q1

REPORT INFORMATION
  Report Type: Spontaneous
  Country: GR (occurrence: GR)
  Receive Date: 20160225
  Receipt Date: 20160325
  Transmission Date: 20160526
  Serious: Yes (Hospitalization)
  Sender: FDA-Public Use
  Company Number: GR-PFIZER INC-2016100298

PATIENT
  Age: 51 Year
  Sex: Female

DRUGS (2)
  1. TAMIFLU [Interacting]
     Active Substance: OSELTAMIVIR PHOSPHATE
     Indication: VIRAL INFECTION
     Dosage: UNK
     Dates: start: 201602, end: 2016
  2. AROMASIN [Suspect]
     Active Substance: EXEMESTANE
     Indication: BREAST CANCER
     Dosage: 1 DF, 1X/DAY
     Dates: start: 20151101, end: 2016

REACTIONS (5)
  - Drug interaction [Recovered/Resolved]
  - Jaundice [Recovered/Resolved]
  - Vomiting [Recovered/Resolved]
  - Hepatitis [Recovered/Resolved]
  - Aspartate aminotransferase increased [Recovered/Resolved]

NARRATIVE: CASE EVENT DATE: 201602
